FAERS Safety Report 17622818 (Version 1)
Quarter: 2020Q2

REPORT INFORMATION
  Report Type: Spontaneous
  Country: US (occurrence: US)
  Receive Date: 20200403
  Receipt Date: 20200403
  Transmission Date: 20200713
  Serious: No
  Sender: FDA-Public Use
  Company Number: US-PFIZER INC-2020057346

PATIENT
  Age: 75 Year
  Sex: Male
  Weight: 70.3 kg

DRUGS (3)
  1. MYLOTARG [Suspect]
     Active Substance: GEMTUZUMAB OZOGAMICIN
     Dosage: 11 MG, UNK
     Route: 042
     Dates: start: 20190914
  2. MYLOTARG [Suspect]
     Active Substance: GEMTUZUMAB OZOGAMICIN
     Dosage: 11 MG, UNK
     Route: 042
     Dates: start: 20180817
  3. MYLOTARG [Suspect]
     Active Substance: GEMTUZUMAB OZOGAMICIN
     Indication: ACUTE PROMYELOCYTIC LEUKAEMIA
     Dosage: 11 MG, UNK
     Route: 042
     Dates: start: 20180803, end: 20180914

REACTIONS (1)
  - Neoplasm progression [Unknown]
